FAERS Safety Report 14067300 (Version 2)
Quarter: 2020Q1

REPORT INFORMATION
  Report Type: Spontaneous
  Country: JP (occurrence: JP)
  Receive Date: 20171010
  Receipt Date: 20200128
  Transmission Date: 20200409
  Serious: Yes (Other)
  Sender: FDA-Public Use
  Company Number: JP-BRISTOL-MYERS SQUIBB COMPANY-BMS-2017-031648

PATIENT
  Age: 66 Year
  Sex: Female

DRUGS (1)
  1. OPDIVO [Suspect]
     Active Substance: NIVOLUMAB
     Indication: NON-SMALL CELL LUNG CANCER RECURRENT
     Dosage: 3 MG/KG, Q2WK
     Route: 042
     Dates: start: 20170105

REACTIONS (4)
  - Scab [Not Recovered/Not Resolved]
  - Cataract [Not Recovered/Not Resolved]
  - Hypothyroidism [Unknown]
  - Iritis [Not Recovered/Not Resolved]

NARRATIVE: CASE EVENT DATE: 2017
